FAERS Safety Report 6767804-1 (Version None)
Quarter: 2010Q2

REPORT INFORMATION
  Report Type: 
  Country: None (occurrence: None)
  Receive Date: 20100614
  Receipt Date: 20100609
  Transmission Date: 20101027
  Serious: Yes (Hospitalization)
  Sender: FDA-Public Use
  Company Number: FR-ROCHE-708444

PATIENT
  Sex: Male

DRUGS (10)
  1. CELLCEPT [Suspect]
     Route: 065
  2. CELLCEPT [Suspect]
     Dosage: DOSAGE DECREASED IN RESPONSE TO EVENT
     Route: 065
  3. BACTRIM [Suspect]
     Indication: DRUG USE FOR UNKNOWN INDICATION
     Route: 065
     Dates: end: 20090804
  4. ADVAGRAF [Concomitant]
  5. CORTANCYL [Concomitant]
  6. ZELITREX [Concomitant]
  7. BISOPROLOL FUMARATE [Concomitant]
     Dosage: 5 MG IN THE MORNING AND 2.5 MG IN THE EVENING
  8. RIMIFON [Concomitant]
  9. MAXEPA [Concomitant]
  10. ZOLPIDEM [Concomitant]

REACTIONS (2)
  - LEUKOPENIA [None]
  - RENAL FAILURE [None]
